FAERS Safety Report 16791332 (Version 5)
Quarter: 2020Q1

REPORT INFORMATION
  Report Type: Spontaneous
  Country: JP (occurrence: JP)
  Receive Date: 20190910
  Receipt Date: 20200303
  Transmission Date: 20200409
  Serious: Yes (Other)
  Sender: FDA-Public Use
  Company Number: JP-INCYTE CORPORATION-2019IN009067

PATIENT

DRUGS (3)
  1. JAKAVI [Suspect]
     Active Substance: RUXOLITINIB
     Indication: PRIMARY MYELOFIBROSIS
     Dosage: 5 MG, UNK
     Route: 048
     Dates: start: 201907, end: 20190902
  2. JAKAVI [Suspect]
     Active Substance: RUXOLITINIB
     Dosage: 5 MG, BID
     Route: 048
     Dates: start: 201909
  3. JAKAVI [Suspect]
     Active Substance: RUXOLITINIB
     Dosage: 10 UNK, BID
     Route: 048
     Dates: start: 201909

REACTIONS (6)
  - Activated partial thromboplastin time prolonged [Unknown]
  - Haemorrhage subcutaneous [Recovered/Resolved]
  - Concomitant disease aggravated [Recovered/Resolved]
  - Haemorrhage subcutaneous [Recovered/Resolved]
  - Arthralgia [Recovered/Resolved]
  - Haematoma [Recovered/Resolved]

NARRATIVE: CASE EVENT DATE: 202001
